FAERS Safety Report 22366814 (Version 1)
Quarter: 2023Q2

REPORT INFORMATION
  Report Type: Spontaneous
  Country: US (occurrence: None)
  Receive Date: 20230524
  Receipt Date: 20230524
  Transmission Date: 20230721
  Serious: No
  Sender: FDA-Public Use
  Company Number: None

PATIENT
  Age: 47 Year
  Sex: Female
  Weight: 95.4 kg

DRUGS (4)
  1. FINGOLIMOD [Suspect]
     Active Substance: FINGOLIMOD
     Indication: Multiple sclerosis
     Dosage: OTHER QUANTITY : 30 CAPSULE(S);?FREQUENCY : DAILY;?
     Route: 048
     Dates: start: 20221125, end: 20230211
  2. BACLOFEN [Concomitant]
     Active Substance: BACLOFEN
  3. NALTREXONE [Concomitant]
     Active Substance: NALTREXONE
  4. ALLEGRA [Concomitant]
     Active Substance: FEXOFENADINE HYDROCHLORIDE

REACTIONS (11)
  - Malaise [None]
  - Productive cough [None]
  - Dyspnoea [None]
  - Dizziness [None]
  - Confusional state [None]
  - Palpitations [None]
  - Nasopharyngitis [None]
  - Asthma [None]
  - Blood pressure increased [None]
  - Feeling abnormal [None]
  - Product substitution issue [None]

NARRATIVE: CASE EVENT DATE: 20230211
